FAERS Safety Report 8852741 (Version 2)
Quarter: 2012Q4

REPORT INFORMATION
  Report Type: 
  Country: US (occurrence: US)
  Receive Date: 20121022
  Receipt Date: 20121211
  Transmission Date: 20130627
  Serious: No
  Sender: FDA-Public Use
  Company Number: US-VERTEX PHARMACEUTICAL INC.-2012-022857

PATIENT
  Age: 37 Year
  Sex: Male
  Weight: 113 kg

DRUGS (6)
  1. VX-950 (TELAPREVIR) [Suspect]
     Indication: HEPATITIS C
     Dosage: 750 mg, tid
     Route: 048
  2. RIBAVIRIN [Concomitant]
     Indication: HEPATITIS C
     Dosage: 200 mg, UNK
  3. RIBAVIRIN [Concomitant]
     Dosage: dose reduced
     Route: 048
  4. PEGINTRON                          /01543001/ [Concomitant]
     Indication: HEPATITIS C
     Dosage: 150 ?g, UNK
  5. BENADRYL                           /00000402/ [Concomitant]
     Dosage: 25 mg, UNK
  6. LITHIUM CARBONATE [Concomitant]
     Dosage: 450 mg, UNK

REACTIONS (5)
  - Abdominal discomfort [Unknown]
  - Weight decreased [Unknown]
  - Haemorrhoids [Unknown]
  - Haemoglobin decreased [Unknown]
  - Diarrhoea [Unknown]
